FAERS Safety Report 5791136-1 (Version None)
Quarter: 2008Q2

REPORT INFORMATION
  Report Type: 
  Country: None (occurrence: None)
  Receive Date: 20080626
  Receipt Date: 20080227
  Transmission Date: 20081010
  Serious: No
  Sender: FDA-Public Use
  Company Number: A0712211A

PATIENT
  Age: 31 Year
  Sex: Male

DRUGS (1)
  1. ALLI [Suspect]
     Dates: start: 20080207, end: 20080226

REACTIONS (3)
  - INSOMNIA [None]
  - IRRITABILITY [None]
  - MIGRAINE [None]
